FAERS Safety Report 17277838 (Version 2)
Quarter: 2020Q1

REPORT INFORMATION
  Report Type: Other
  Country: GB (occurrence: GB)
  Receive Date: 20200116
  Receipt Date: 20200120
  Transmission Date: 20200409
  Serious: Yes (Hospitalization, Other)
  Sender: FDA-Public Use
  Company Number: GB-LEXICON PHARMACEUTICALS, INC-20-1606-00029

PATIENT
  Sex: Male

DRUGS (2)
  1. XERMELO [Suspect]
     Active Substance: TELOTRISTAT ETHYL
     Indication: NEUROENDOCRINE TUMOUR
     Route: 065
  2. SOMATULINE AUTOGEL [Suspect]
     Active Substance: LANREOTIDE ACETATE
     Indication: PRODUCT USED FOR UNKNOWN INDICATION
     Route: 065

REACTIONS (10)
  - Pain in extremity [Unknown]
  - Cardiac disorder [Unknown]
  - Hepatic neoplasm [Unknown]
  - Cardiac disorder [Not Recovered/Not Resolved]
  - Flushing [Unknown]
  - Swelling face [Unknown]
  - Peripheral swelling [Unknown]
  - Paraesthesia [Unknown]
  - Diarrhoea [Unknown]
  - Off label use [Unknown]
